FAERS Safety Report 24627914 (Version 1)
Quarter: 2024Q4

REPORT INFORMATION
  Report Type: Spontaneous
  Country: US (occurrence: US)
  Receive Date: 20241117
  Receipt Date: 20241117
  Transmission Date: 20250115
  Serious: Yes (Other)
  Sender: DR REDDYS
  Company Number: US-DRL-USA-LIT/USA/24/0016933

PATIENT
  Sex: Male

DRUGS (7)
  1. DOXORUBICIN [Suspect]
     Active Substance: DOXORUBICIN
     Indication: Congenital fibrosarcoma
  2. CYCLOPHOSPHAMIDE [Suspect]
     Active Substance: CYCLOPHOSPHAMIDE
     Indication: Congenital fibrosarcoma
  3. VINCRISTINE [Suspect]
     Active Substance: VINCRISTINE
     Indication: Congenital fibrosarcoma
  4. ACTINOMYCIN D [Suspect]
     Active Substance: DACTINOMYCIN
     Indication: Congenital fibrosarcoma
  5. CARBOPLATIN [Concomitant]
     Active Substance: CARBOPLATIN
     Indication: Congenital fibrosarcoma
  6. ETOPOSIDE [Concomitant]
     Active Substance: ETOPOSIDE
     Indication: Congenital fibrosarcoma
  7. IFOSFAMIDE [Concomitant]
     Active Substance: IFOSFAMIDE
     Indication: Congenital fibrosarcoma

REACTIONS (3)
  - Venoocclusive liver disease [Unknown]
  - Drug ineffective for unapproved indication [Unknown]
  - Product use in unapproved indication [Unknown]
